FAERS Safety Report 12861384 (Version 1)
Quarter: 2016Q4

REPORT INFORMATION
  Report Type: Spontaneous
  Country: GB (occurrence: GB)
  Receive Date: 20161019
  Receipt Date: 20161019
  Transmission Date: 20170207
  Serious: Yes (Other)
  Sender: FDA-Public Use
  Company Number: GB-DRREDDYS-GER/UKI/16/0084156

PATIENT
  Sex: Female

DRUGS (3)
  1. SOLPADEINE MAX [Concomitant]
     Indication: MIGRAINE
     Dosage: ONE TABLET IN MIGRAINE CRISIS (TOOK SIX TABLETS IN THE LAST WEEK)
     Route: 065
  2. SERTRALINE [Suspect]
     Active Substance: SERTRALINE HYDROCHLORIDE
     Indication: PRODUCT USED FOR UNKNOWN INDICATION
     Route: 065
     Dates: start: 201609
  3. IBUPROFEN. [Concomitant]
     Active Substance: IBUPROFEN
     Indication: PRODUCT USED FOR UNKNOWN INDICATION
     Route: 065

REACTIONS (4)
  - Asthenia [Not Recovered/Not Resolved]
  - Influenza like illness [Not Recovered/Not Resolved]
  - Migraine [Not Recovered/Not Resolved]
  - Malaise [Not Recovered/Not Resolved]

NARRATIVE: CASE EVENT DATE: 2016
